FAERS Safety Report 17133210 (Version 1)
Quarter: 2019Q4

REPORT INFORMATION
  Report Type: Spontaneous
  Country: US (occurrence: US)
  Receive Date: 20191210
  Receipt Date: 20191210
  Transmission Date: 20200122
  Serious: No
  Sender: FDA-Public Use
  Company Number: US-UCBSA-2016036067

PATIENT
  Age: 67 Year
  Sex: Female

DRUGS (1)
  1. CIMZIA [Suspect]
     Active Substance: CERTOLIZUMAB PEGOL
     Indication: PRODUCT USED FOR UNKNOWN INDICATION
     Dosage: 200 MG DAILY
     Dates: start: 20160607, end: 20160707

REACTIONS (4)
  - Nasal discomfort [Unknown]
  - Off label use [Unknown]
  - Axillary mass [Unknown]
  - Pain of skin [Unknown]

NARRATIVE: CASE EVENT DATE: 20160607
